FAERS Safety Report 9424742 (Version 2)
Quarter: 2013Q3

REPORT INFORMATION
  Report Type: Spontaneous
  Country: GB (occurrence: GB)
  Receive Date: 20130725
  Receipt Date: 20130924
  Transmission Date: 20140515
  Serious: Yes (Other)
  Sender: FDA-Public Use
  Company Number: GER/UKI/13/0032705

PATIENT
  Age: 55 Year
  Sex: Female
  Weight: 83.6 kg

DRUGS (4)
  1. ATORVASTATIN [Suspect]
     Indication: BLOOD CHOLESTEROL INCREASED
     Dates: start: 20130411, end: 20130601
  2. FLUOXETINE (FLUOXETINE) [Concomitant]
  3. LEVOTHYROXINE (LEVOTHYROXINE) [Concomitant]
  4. AMLODIPINE [Concomitant]

REACTIONS (7)
  - Anxiety [None]
  - Depression [None]
  - Paranoia [None]
  - Personality change [None]
  - Fatigue [None]
  - Movement disorder [None]
  - Muscular weakness [None]
